FAERS Safety Report 13029110 (Version 2)
Quarter: 2017Q4

REPORT INFORMATION
  Report Type: Spontaneous
  Country: US (occurrence: US)
  Receive Date: 20161215
  Receipt Date: 20171211
  Transmission Date: 20180320
  Serious: No
  Sender: FDA-Public Use
  Company Number: US-AUROBINDO-AUR-APU-2016-11246

PATIENT
  Sex: Female
  Weight: 104 kg

DRUGS (1)
  1. MIRTAZAPINE TABLETS 15 MG [Suspect]
     Active Substance: MIRTAZAPINE
     Indication: WEIGHT INCREASED
     Dosage: 1 DF, AT BED TIME
     Route: 048
     Dates: start: 20160714, end: 20160716

REACTIONS (3)
  - Vision blurred [Unknown]
  - Eye disorder [Unknown]
  - Off label use [Unknown]
